FAERS Safety Report 19807913 (Version 1)
Quarter: 2021Q3

REPORT INFORMATION
  Report Type: Spontaneous
  Country: CN (occurrence: CN)
  Receive Date: 20210908
  Receipt Date: 20210908
  Transmission Date: 20211014
  Serious: Yes (Hospitalization, Other)
  Sender: FDA-Public Use
  Company Number: CN-PFIZER INC-202101120658

PATIENT
  Age: 62 Year
  Sex: Male

DRUGS (1)
  1. EPIRUBICIN HCL [Suspect]
     Active Substance: EPIRUBICIN HYDROCHLORIDE
     Indication: BLADDER CANCER RECURRENT
     Dosage: 50 MG/M2 DISSOLVED IN 50 ML OF SALINE SOLUTION
     Route: 013

REACTIONS (1)
  - Kounis syndrome [Recovered/Resolved]
